FAERS Safety Report 14011044 (Version 1)
Quarter: 2017Q3

REPORT INFORMATION
  Report Type: Spontaneous
  Country: US (occurrence: US)
  Receive Date: 20170925
  Receipt Date: 20170925
  Transmission Date: 20171128
  Serious: No
  Sender: FDA-Public Use
  Company Number: None

PATIENT
  Age: 63 Year
  Sex: Male
  Weight: 67.5 kg

DRUGS (5)
  1. VITAMIN D [Concomitant]
     Active Substance: CHOLECALCIFEROL
  2. CALCIUM [Concomitant]
     Active Substance: CALCIUM
  3. FOLIC ACID. [Concomitant]
     Active Substance: FOLIC ACID
  4. CHLORHEXIDINE GLUCONATE 0.12% ORAL RINSE, USP [Suspect]
     Active Substance: CHLORHEXIDINE GLUCONATE
     Indication: PERIODONTAL DISEASE
     Dosage: QUANTITY:10 ML;OTHER ROUTE:RINSE + SPIT?
     Dates: start: 20170915, end: 20170920
  5. VITAMIN B12 [Concomitant]
     Active Substance: CYANOCOBALAMIN

REACTIONS (4)
  - Muscle spasms [None]
  - Diarrhoea [None]
  - Irritable bowel syndrome [None]
  - Decreased appetite [None]

NARRATIVE: CASE EVENT DATE: 20170915
